FAERS Safety Report 6551217-1 (Version None)
Quarter: 2010Q1

REPORT INFORMATION
  Report Type: 
  Country: None (occurrence: None)
  Receive Date: 20100121
  Receipt Date: 20100106
  Transmission Date: 20100710
  Serious: Yes (Hospitalization)
  Sender: FDA-Public Use
  Company Number: 2010000096

PATIENT
  Age: 48 Year
  Sex: Female

DRUGS (3)
  1. ERLOTINIB HYDROCHLORIDE [Suspect]
     Indication: NEOPLASM
     Dosage: (QD), ORAL
     Route: 048
     Dates: start: 20091110
  2. GDC-0941 [Suspect]
     Indication: NEOPLASM
     Dosage: ORAL
     Route: 048
     Dates: start: 20091109, end: 20091116
  3. DICLOFENAC SODIUM [Concomitant]

REACTIONS (13)
  - ABDOMINAL DISTENSION [None]
  - BLOOD ALBUMIN DECREASED [None]
  - BLOOD ALKALINE PHOSPHATASE INCREASED [None]
  - C-REACTIVE PROTEIN INCREASED [None]
  - CARDIOVASCULAR DISORDER [None]
  - COLITIS ULCERATIVE [None]
  - GAMMA-GLUTAMYLTRANSFERASE INCREASED [None]
  - HYPONATRAEMIA [None]
  - INTESTINAL DILATATION [None]
  - LYMPHOPENIA [None]
  - MALAISE [None]
  - NAUSEA [None]
  - PYREXIA [None]
